FAERS Safety Report 9646341 (Version 2)
Quarter: 2013Q4

REPORT INFORMATION
  Report Type: Spontaneous
  Country: DE (occurrence: DE)
  Receive Date: 20131025
  Receipt Date: 20131025
  Transmission Date: 20140711
  Serious: Yes (Life-Threatening, Hospitalization)
  Sender: FDA-Public Use
  Company Number: DE-B.I. PHARMACEUTICALS,INC./RIDGEFIELD-2013-BI-32128DE

PATIENT
  Sex: Female
  Weight: 90 kg

DRUGS (5)
  1. PRADAXA [Suspect]
     Indication: ATRIAL FIBRILLATION
     Route: 048
     Dates: start: 20130315, end: 20130828
  2. METOHEXAL 23,5 [Concomitant]
     Indication: HYPERTENSION
     Dosage: 2 ANZ
     Route: 048
     Dates: start: 201301
  3. RAMILICH 5 [Concomitant]
     Indication: HYPERTENSION
     Dosage: 2 ANZ
     Route: 048
  4. DIGITOXIN 0,07 [Concomitant]
     Indication: ATRIAL FIBRILLATION
     Dosage: 1 ANZ
     Route: 048
  5. RAMIPRIL 5 [Concomitant]
     Dosage: 2 ANZ

REACTIONS (5)
  - Intestinal haemorrhage [Recovered/Resolved]
  - Lipoma [Recovered/Resolved]
  - Haemorrhage [Recovered/Resolved]
  - Anaemia [Recovered/Resolved]
  - Melaena [Not Recovered/Not Resolved]
